FAERS Safety Report 14025846 (Version 3)
Quarter: 2017Q4

REPORT INFORMATION
  Report Type: Report from Study
  Country: None (occurrence: TR)
  Receive Date: 20170929
  Receipt Date: 20171109
  Transmission Date: 20180321
  Serious: Yes (Hospitalization)
  Sender: FDA-Public Use
  Company Number: TR-ABBVIE-17K-161-2114139-00

PATIENT
  Age: 76 Year
  Sex: Male
  Weight: 70 kg

DRUGS (5)
  1. DUODOPA [Suspect]
     Active Substance: CARBIDOPA\LEVODOPA
     Route: 050
     Dates: start: 20171103
  2. DUODOPA [Suspect]
     Active Substance: CARBIDOPA\LEVODOPA
     Indication: PARKINSON^S DISEASE
     Dosage: MORNING DOSE: 15.00 ML??CONTINUOUS DOSE: 4.00 ML??EXTRA DOSE: 3.00 ML
     Route: 050
     Dates: start: 20160926, end: 20171030
  3. PK-MERZ [Concomitant]
     Active Substance: AMANTADINE
     Indication: PARKINSON^S DISEASE
     Route: 048
  4. IGNIS [Concomitant]
     Indication: PARKINSON^S DISEASE
     Route: 048
     Dates: start: 20170126, end: 201710
  5. ZYPREXA [Concomitant]
     Active Substance: OLANZAPINE
     Indication: PARKINSON^S DISEASE
     Route: 048
     Dates: start: 20171103

REACTIONS (4)
  - Embedded device [Recovered/Resolved]
  - Embedded device [Recovered/Resolved]
  - Device dislocation [Recovered/Resolved]
  - Fall [Recovered/Resolved]

NARRATIVE: CASE EVENT DATE: 201709
